FAERS Safety Report 7638851-2 (Version None)
Quarter: 2011Q3

REPORT INFORMATION
  Report Type: 
  Country: None (occurrence: None)
  Receive Date: 20110726
  Receipt Date: 20110726
  Transmission Date: 20111222
  Serious: No
  Sender: FDA-Public Use
  Company Number: None

PATIENT
  Age: 84 Year
  Sex: Female
  Weight: 45 kg

DRUGS (2)
  1. VANCOMYCIN [Suspect]
     Indication: POSTOPERATIVE CARE
     Dosage: 500 MG Q24H INTRAVENOUS (NOT OTHERWISE SPECIFIED)
     Route: 042
     Dates: start: 20110616, end: 20110616
  2. VANCOMYCIN [Suspect]
     Indication: CARDIAC PACEMAKER INSERTION
     Dosage: 500 MG Q24H INTRAVENOUS (NOT OTHERWISE SPECIFIED)
     Route: 042
     Dates: start: 20110616, end: 20110616

REACTIONS (4)
  - INJECTION SITE ERYTHEMA [None]
  - INJECTION SITE PRURITUS [None]
  - INJECTION SITE IRRITATION [None]
  - INFUSION RELATED REACTION [None]
